FAERS Safety Report 14540826 (Version 1)
Quarter: 2018Q1

REPORT INFORMATION
  Report Type: Spontaneous
  Country: GB (occurrence: GB)
  Receive Date: 20180216
  Receipt Date: 20180216
  Transmission Date: 20180509
  Serious: Yes (Hospitalization)
  Sender: FDA-Public Use
  Company Number: GB-OTSUKA-DJ20061205

PATIENT

DRUGS (2)
  1. ABILIFY [Suspect]
     Active Substance: ARIPIPRAZOLE
     Indication: SCHIZOPHRENIA
     Route: 048
     Dates: start: 20060201, end: 20060309
  2. CLOZAPINE. [Concomitant]
     Active Substance: CLOZAPINE
     Indication: SCHIZOPHRENIA
     Route: 065

REACTIONS (3)
  - Musculoskeletal stiffness [Recovering/Resolving]
  - Blood creatine phosphokinase increased [Recovering/Resolving]
  - Feeling of body temperature change [Recovering/Resolving]

NARRATIVE: CASE EVENT DATE: 20060309
